FAERS Safety Report 4629016-7 (Version None)
Quarter: 2005Q2

REPORT INFORMATION
  Report Type: 
  Country: None (occurrence: None)
  Receive Date: 20050405
  Receipt Date: 20050405
  Transmission Date: 20051028
  Serious: Yes (Other)
  Sender: FDA-Public Use
  Company Number: None

PATIENT
  Age: 79 Year
  Sex: Female
  Weight: 54.4316 kg

DRUGS (1)
  1. BEXTRA [Suspect]
     Dosage: ONE DAILY ORAL
     Route: 048
     Dates: start: 20050307, end: 20050331

REACTIONS (2)
  - DYSPHAGIA [None]
  - TONGUE ULCERATION [None]
